FAERS Safety Report 9738733 (Version 1)
Quarter: 2013Q4

REPORT INFORMATION
  Report Type: Report from Study
  Country: DE (occurrence: DE)
  Receive Date: 20131209
  Receipt Date: 20131209
  Transmission Date: 20140711
  Serious: Yes (Other)
  Sender: FDA-Public Use
  Company Number: DE-BEH-2013039252

PATIENT
  Age: 68 Year
  Sex: Male
  Weight: 100 kg

DRUGS (2)
  1. PRIVIGEN [Suspect]
     Dosage: MIN./MAX. INFUSION RATE 1.7 ML/MIN
     Route: 042
     Dates: start: 20130603, end: 20130603
  2. PRIVIGEN [Suspect]
     Indication: SECONDARY IMMUNODEFICIENCY
     Dosage: MIN./MAX. INFUSION RATE 1.7 ML/MIN
     Route: 042
     Dates: start: 20130709, end: 20130709

REACTIONS (2)
  - Pneumonia [Recovered/Resolved]
  - Upper respiratory tract infection [Recovered/Resolved]
